FAERS Safety Report 17523680 (Version 1)
Quarter: 2020Q1

REPORT INFORMATION
  Report Type: Spontaneous
  Country: GB (occurrence: GB)
  Receive Date: 20200310
  Receipt Date: 20200310
  Transmission Date: 20200409
  Serious: Yes (Other)
  Sender: FDA-Public Use
  Company Number: GB-PFIZER INC-2020103798

PATIENT
  Age: 23 Year
  Sex: Female
  Weight: 71.95 kg

DRUGS (3)
  1. ETHOSUXIMIDE. [Suspect]
     Active Substance: ETHOSUXIMIDE
     Indication: EPILEPSY
     Dosage: 1000 MG, 1X/DAY
     Route: 048
     Dates: start: 20191211, end: 20200122
  2. LAMOTRIGINE. [Concomitant]
     Active Substance: LAMOTRIGINE
     Dosage: 400 MG, 1X/DAY
  3. LEVETIRACETAM. [Concomitant]
     Active Substance: LEVETIRACETAM
     Dosage: 3500 MG, 1X/DAY

REACTIONS (6)
  - Agitation [Not Recovered/Not Resolved]
  - Depressed mood [Not Recovered/Not Resolved]
  - Suicidal ideation [Not Recovered/Not Resolved]
  - Anxiety [Not Recovered/Not Resolved]
  - Hallucination [Not Recovered/Not Resolved]
  - Paranoia [Unknown]

NARRATIVE: CASE EVENT DATE: 20191226
